FAERS Safety Report 13803705 (Version 6)
Quarter: 2018Q4

REPORT INFORMATION
  Report Type: Spontaneous
  Country: BR (occurrence: BR)
  Receive Date: 20170728
  Receipt Date: 20181129
  Transmission Date: 20190204
  Serious: Yes (Hospitalization, Other)
  Sender: FDA-Public Use
  Company Number: BR-BIOGEN-2017BI00395290

PATIENT
  Age: 46 Year
  Sex: Female

DRUGS (11)
  1. TYSABRI [Suspect]
     Active Substance: NATALIZUMAB
     Route: 042
     Dates: end: 20180817
  2. OMEPRAZOLE. [Concomitant]
     Active Substance: OMEPRAZOLE
     Indication: PRODUCT USED FOR UNKNOWN INDICATION
     Dosage: 2 CAPSULES
     Route: 048
  3. TYSABRI [Suspect]
     Active Substance: NATALIZUMAB
     Route: 042
     Dates: start: 201709
  4. AVONEX [Suspect]
     Active Substance: INTERFERON BETA-1A
     Indication: MULTIPLE SCLEROSIS
     Route: 030
  5. TYSABRI [Suspect]
     Active Substance: NATALIZUMAB
     Indication: MULTIPLE SCLEROSIS
     Route: 042
     Dates: start: 20130901
  6. TYSABRI [Suspect]
     Active Substance: NATALIZUMAB
     Route: 042
     Dates: start: 201401
  7. BACLOFEN. [Suspect]
     Active Substance: BACLOFEN
     Indication: GAIT DISTURBANCE
     Dosage: 1 TABLET
     Route: 048
  8. BACLOFEN. [Suspect]
     Active Substance: BACLOFEN
     Route: 065
  9. OMEPRAZOLE. [Concomitant]
     Active Substance: OMEPRAZOLE
     Route: 065
  10. FLUOXETINE CHLORHYDRATE [Concomitant]
     Indication: PRODUCT USED FOR UNKNOWN INDICATION
     Dosage: 2 TABLETS
     Route: 048
  11. FLUOXETINE CHLORHYDRATE [Concomitant]
     Route: 065

REACTIONS (17)
  - Epilepsy [Recovered/Resolved]
  - Aneurysm [Recovered/Resolved]
  - Hip fracture [Not Recovered/Not Resolved]
  - Mental disorder [Unknown]
  - Fall [Recovered/Resolved]
  - Somnolence [Unknown]
  - Osteoporosis [Not Recovered/Not Resolved]
  - Peripheral swelling [Unknown]
  - Limb discomfort [Not Recovered/Not Resolved]
  - Paraesthesia [Not Recovered/Not Resolved]
  - Dizziness [Unknown]
  - Femur fracture [Recovered/Resolved with Sequelae]
  - Abnormal faeces [Unknown]
  - Mobility decreased [Unknown]
  - Haemorrhage [Not Recovered/Not Resolved]
  - Paraplegia [Not Recovered/Not Resolved]
  - Visual impairment [Unknown]

NARRATIVE: CASE EVENT DATE: 2017
